FAERS Safety Report 10067379 (Version 1)
Quarter: 2014Q2

REPORT INFORMATION
  Report Type: Spontaneous
  Country: US (occurrence: None)
  Receive Date: 20140408
  Receipt Date: 20140408
  Transmission Date: 20141212
  Serious: Yes (Other)
  Sender: FDA-Public Use
  Company Number: None

PATIENT
  Age: 73 Year
  Sex: Male

DRUGS (5)
  1. DIAZEPAM 10 MG [Suspect]
     Indication: ANXIETY
     Dosage: 1 TABLET QHS/BEDTIME ORAL
     Route: 048
     Dates: start: 20140403, end: 20140406
  2. DIAZEPAM 10 MG [Suspect]
     Indication: RESTLESSNESS
     Dosage: 1 TABLET QHS/BEDTIME ORAL
     Route: 048
     Dates: start: 20140403, end: 20140406
  3. FAMOTIDINE [Concomitant]
  4. NEXIUM [Concomitant]
  5. LIPITOR [Concomitant]

REACTIONS (5)
  - Tremor [None]
  - Cold sweat [None]
  - Jaw disorder [None]
  - Product substitution issue [None]
  - Product quality issue [None]
